FAERS Safety Report 9127772 (Version 1)
Quarter: 2013Q1

REPORT INFORMATION
  Report Type: Spontaneous
  Country: US (occurrence: US)
  Receive Date: 20130122
  Receipt Date: 20130122
  Transmission Date: 20140127
  Serious: Yes (Hospitalization, Other)
  Sender: FDA-Public Use
  Company Number: US-JNJFOC-20121203844

PATIENT
  Age: 51 Year
  Sex: Male

DRUGS (7)
  1. RISPERDAL CONSTA [Suspect]
     Indication: SCHIZOPHRENIA
     Route: 030
  2. RISPERDAL CONSTA [Suspect]
     Indication: SCHIZOPHRENIA
     Route: 030
     Dates: start: 201008
  3. WELLBUTRIN SR [Concomitant]
     Route: 065
  4. LEVITRA [Concomitant]
     Route: 065
  5. ATENOLOL [Concomitant]
     Route: 048
  6. BENZATROPINE [Concomitant]
     Route: 065
  7. COGENTIN [Concomitant]
     Route: 048

REACTIONS (4)
  - Rhabdomyolysis [Recovered/Resolved]
  - Neuroleptic malignant syndrome [Recovered/Resolved]
  - Blood urine present [Recovered/Resolved]
  - Pain in extremity [Recovered/Resolved]
